FAERS Safety Report 10737354 (Version 2)
Quarter: 2015Q1

REPORT INFORMATION
  Report Type: Spontaneous
  Country: US (occurrence: US)
  Receive Date: 20150126
  Receipt Date: 20150323
  Transmission Date: 20150721
  Serious: Yes (Other)
  Sender: FDA-Public Use
  Company Number: US-PFIZER INC-2015024609

PATIENT
  Age: 74 Year
  Sex: Female
  Weight: 61 kg

DRUGS (20)
  1. TEMAZEPAM. [Concomitant]
     Active Substance: TEMAZEPAM
     Indication: SLEEP DISORDER
     Dosage: 15 MG, DAILY
  2. BACLOFEN. [Concomitant]
     Active Substance: BACLOFEN
     Indication: MUSCLE RELAXANT THERAPY
     Dosage: 10 MG, 4X/DAY
  3. TRIAZOLAM. [Concomitant]
     Active Substance: TRIAZOLAM
     Dosage: 0.25 MG, UNK
  4. DOXYCYCLINE HYCLATE. [Concomitant]
     Active Substance: DOXYCYCLINE HYCLATE
     Indication: PRURITUS
     Dosage: 100 MG A DAY, AS NEEDED
  5. ALPRAZOLAM. [Concomitant]
     Active Substance: ALPRAZOLAM
     Indication: ANXIETY
     Dosage: .25 MG, TWICE DAILY AS NEEDED
  6. LACTULOSE. [Concomitant]
     Active Substance: LACTULOSE
     Dosage: 10 G/15 ML (15 ML), UNK
     Route: 048
  7. NEURONTIN [Concomitant]
     Active Substance: GABAPENTIN
     Indication: NEURALGIA
     Dosage: 300 MG, UNK
  8. GABAPENTIN. [Concomitant]
     Active Substance: GABAPENTIN
     Indication: NEURALGIA
     Dosage: 300 MG, 3X/DAY
  9. DIAZEPAM. [Concomitant]
     Active Substance: DIAZEPAM
     Dosage: 5 MG, UNK
  10. EMLA [Concomitant]
     Active Substance: LIDOCAINE\PRILOCAINE
     Dosage: (LIDOCAINE-2.5%/PRILOCAINE-2.5%) UNK
     Route: 061
  11. NYSTATIN. [Concomitant]
     Active Substance: NYSTATIN
     Dosage: 100000 IU/ML
     Route: 048
  12. ACETAMINOPHEN W/OXYCODONE [Concomitant]
     Active Substance: ACETAMINOPHEN\OXYCODONE HYDROCHLORIDE
     Indication: PAIN
     Dosage: (OXYCODONE HYDROCHLORIDE-5 MG/PARACETAMOL-325 MG) UNK
  13. PROCHLORPERAZINE MALEATE. [Concomitant]
     Active Substance: PROCHLORPERAZINE MALEATE
     Indication: NAUSEA
     Dosage: 10 MG, UNK
  14. LEVOTHYROXINE [Concomitant]
     Active Substance: LEVOTHYROXINE
     Indication: THYROID DISORDER
     Dosage: 0.05 MG, 1X/DAY
  15. INLYTA [Suspect]
     Active Substance: AXITINIB
     Indication: METASTATIC RENAL CELL CARCINOMA
     Dosage: 5 MG, 2X DAY CYCLIC
     Route: 048
     Dates: start: 201406
  16. NYSTATIN. [Concomitant]
     Active Substance: NYSTATIN
     Dosage: 100000 (UNIT/GRAM), UNK
     Route: 061
  17. PERCOCET [Concomitant]
     Active Substance: ACETAMINOPHEN\OXYCODONE HYDROCHLORIDE
     Indication: PAIN
     Dosage: 5 MG, 3X/DAY
  18. PERCOCET [Concomitant]
     Active Substance: ACETAMINOPHEN\OXYCODONE HYDROCHLORIDE
     Dosage: 325 MG, 3X/DAY
  19. PREDNISONE. [Concomitant]
     Active Substance: PREDNISONE
     Indication: PAIN
     Dosage: 5 MG, 2X/DAY
  20. DOXYCYCLINE HYCLATE. [Concomitant]
     Active Substance: DOXYCYCLINE HYCLATE
     Indication: HYPERSENSITIVITY

REACTIONS (19)
  - Aphthous stomatitis [Recovered/Resolved]
  - Malaise [Recovered/Resolved]
  - Disease progression [Unknown]
  - Metastatic renal cell carcinoma [Unknown]
  - Neutropenia [Unknown]
  - Arthralgia [Unknown]
  - Headache [Recovered/Resolved]
  - Musculoskeletal stiffness [Unknown]
  - Sensory loss [Unknown]
  - Musculoskeletal chest pain [Unknown]
  - Pancytopenia [Unknown]
  - Fatigue [Recovered/Resolved]
  - Joint range of motion decreased [Unknown]
  - Motor dysfunction [Unknown]
  - Thyroid disorder [Unknown]
  - Asthenia [Unknown]
  - Hypotonia [Unknown]
  - Myalgia [Unknown]
  - Spinal pain [Unknown]

NARRATIVE: CASE EVENT DATE: 20141231
